FAERS Safety Report 20125878 (Version 1)
Quarter: 2021Q4

REPORT INFORMATION
  Report Type: Spontaneous
  Country: DE (occurrence: DE)
  Receive Date: 20211129
  Receipt Date: 20211129
  Transmission Date: 20220303
  Serious: Yes (Hospitalization, Other)
  Sender: FDA-Public Use
  Company Number: DE-TAKEDA-DE202022341

PATIENT
  Age: 49 Year
  Sex: Female
  Weight: 55 kg

DRUGS (13)
  1. CANDESARTAN [Suspect]
     Active Substance: CANDESARTAN
     Indication: Hypertension
     Dosage: 32 MILLIGRAM, QD
     Route: 048
  2. NATPARA (PARATHYROID HORMONE) [Suspect]
     Active Substance: PARATHYROID HORMONE
     Indication: Hypoparathyroidism
     Dosage: 25 MICROGRAM, QD (INJECTION PEN,MIXING DEVICE,NEEDLES)
     Route: 058
     Dates: start: 20191107
  3. NATPARA (PARATHYROID HORMONE) [Suspect]
     Active Substance: PARATHYROID HORMONE
     Dosage: 25 MICROGRAM, QD (INJECTION PEN,MIXING DEVICE,NEEDLES)
     Route: 058
     Dates: start: 20191107
  4. NATPARA (PARATHYROID HORMONE) [Suspect]
     Active Substance: PARATHYROID HORMONE
     Dosage: 25 MICROGRAM, QD (INJECTION PEN,MIXING DEVICE,NEEDLES)
     Route: 058
     Dates: start: 20191107
  5. XARELTO [Concomitant]
     Active Substance: RIVAROXABAN
     Indication: Anticoagulant therapy
     Dosage: UNK UNK, QD (DAILY), START 01-MAY-2020
     Route: 048
  6. XARELTO [Concomitant]
     Active Substance: RIVAROXABAN
     Indication: Pulmonary embolism
  7. ESOMEPRAZOL                        /01479301/ [Concomitant]
     Indication: Gastric disorder
     Dosage: 40 MILLIGRAM, QD
     Route: 048
  8. EPLERENONE [Concomitant]
     Active Substance: EPLERENONE
     Indication: Product use in unapproved indication
     Dosage: 50 MILLIGRAM, QD
     Route: 048
  9. EUTHYROX [Concomitant]
     Active Substance: LEVOTHYROXINE SODIUM
     Indication: Post procedural complication
     Dosage: 100 MICROGRAM, QD
     Route: 048
  10. CALCIUM [Concomitant]
     Active Substance: CALCIUM
     Indication: Hypoparathyroidism
     Dosage: UNK
     Route: 065
  11. METOHEXAL                          /00376902/ [Concomitant]
     Indication: Hypertonia
     Dosage: 47.5 MILLIGRAM, QD
     Route: 048
  12. METOHEXAL                          /00376902/ [Concomitant]
     Indication: Hypertension
  13. ROCALTROL [Concomitant]
     Active Substance: CALCITRIOL
     Indication: Hypoparathyroidism
     Dosage: UNK
     Route: 065

REACTIONS (12)
  - Pulmonary embolism [Recovered/Resolved]
  - Post procedural complication [Recovered/Resolved]
  - Hypocalcaemia [Recovered/Resolved]
  - Hypercalcaemia [Recovered/Resolved]
  - Arthropathy [Not Recovered/Not Resolved]
  - Nasopharyngitis [Recovered/Resolved]
  - Heavy menstrual bleeding [Not Recovered/Not Resolved]
  - Fatigue [Recovered/Resolved]
  - Asthenia [Not Recovered/Not Resolved]
  - Rhinitis [Not Recovered/Not Resolved]
  - Cough [Not Recovered/Not Resolved]
  - Vertigo [Recovered/Resolved]

NARRATIVE: CASE EVENT DATE: 20200501
